FAERS Safety Report 9871339 (Version 1)
Quarter: 2014Q1

REPORT INFORMATION
  Report Type: Spontaneous
  Country: CO (occurrence: CO)
  Receive Date: 20140205
  Receipt Date: 20140205
  Transmission Date: 20141002
  Serious: Yes (Other)
  Sender: FDA-Public Use
  Company Number: CO-UCBSA-111407

PATIENT
  Sex: Female

DRUGS (2)
  1. NEUPRO [Suspect]
     Indication: PARKINSON^S DISEASE
     Dosage: DAILY DOSE: 6 MG
     Route: 062
     Dates: start: 20130717, end: 201401
  2. LEVODOPA/ CARBIDOPA [Concomitant]
     Dosage: 250/25 MG EACH 4 HOURS, SINCE 11 YEARS

REACTIONS (5)
  - Pruritus [Unknown]
  - Erythema [Unknown]
  - Skin reaction [Unknown]
  - Skin irritation [Unknown]
  - Laceration [Unknown]
